FAERS Safety Report 18033331 (Version 2)
Quarter: 2020Q3

REPORT INFORMATION
  Report Type: Spontaneous
  Country: IT (occurrence: IT)
  Receive Date: 20200716
  Receipt Date: 20200803
  Transmission Date: 20201103
  Serious: Yes (Death)
  Sender: FDA-Public Use
  Company Number: NVSC2020IT199198

PATIENT
  Age: 63 Year
  Sex: Male

DRUGS (1)
  1. ZOMETA [Suspect]
     Active Substance: ZOLEDRONIC ACID
     Indication: RENAL CANCER METASTATIC
     Dosage: 4 MG
     Route: 030
     Dates: start: 20170401, end: 20180401

REACTIONS (2)
  - Osteonecrosis of jaw [Fatal]
  - Hypoaesthesia [Fatal]

NARRATIVE: CASE EVENT DATE: 20191218
